FAERS Safety Report 20134526 (Version 2)
Quarter: 2021Q4

REPORT INFORMATION
  Report Type: Spontaneous
  Country: RU (occurrence: RU)
  Receive Date: 20211201
  Receipt Date: 20211210
  Transmission Date: 20220303
  Serious: Yes (Other)
  Sender: FDA-Public Use
  Company Number: RU-NOVARTISPH-NVSC2021RU271237

PATIENT
  Sex: Female
  Weight: 84 kg

DRUGS (2)
  1. ZOMETA [Suspect]
     Active Substance: ZOLEDRONIC ACID
     Indication: Breast cancer metastatic
     Dosage: 4 MG, EVERY 28 DAYS
     Route: 042
     Dates: start: 201209
  2. FULVESTRANT [Concomitant]
     Active Substance: FULVESTRANT
     Indication: Breast cancer metastatic
     Dosage: 500 MG, EVERY 28 DAYS (IN THE 1ST MONTH OF THERAPY: ON THE 1ST, 15TH, 28TH DAYS)
     Route: 030
     Dates: start: 201209

REACTIONS (1)
  - Osteonecrosis of jaw [Recovered/Resolved]

NARRATIVE: CASE EVENT DATE: 20140101
